FAERS Safety Report 19828396 (Version 1)
Quarter: 2021Q3

REPORT INFORMATION
  Report Type: Other
  Country: JP (occurrence: JP)
  Receive Date: 20210914
  Receipt Date: 20210914
  Transmission Date: 20211014
  Serious: Yes (Other)
  Sender: FDA-Public Use
  Company Number: JP-ROCHE-2907722

PATIENT

DRUGS (3)
  1. BEVACIZUMAB. [Suspect]
     Active Substance: BEVACIZUMAB
     Indication: COLORECTAL CANCER
     Dosage: ON DAY 1
     Route: 065
  2. OXALIPLATIN. [Suspect]
     Active Substance: OXALIPLATIN
     Indication: COLORECTAL CANCER
     Route: 042
  3. TS?1 [Suspect]
     Active Substance: GIMERACIL\OTERACIL\TEGAFUR
     Indication: COLORECTAL CANCER
     Dosage: 80?120 MG/DAY (BODY SURFACE AREA [BSA] { 1.25M2, 80 MG; BSA 1.25?1.50M2, 100 MG; BSA }/=1.50M2, 120
     Route: 048

REACTIONS (10)
  - Decreased appetite [Unknown]
  - Anaemia [Unknown]
  - Hyperbilirubinaemia [Unknown]
  - Thrombocytopenia [Unknown]
  - Malaise [Unknown]
  - Peripheral sensory neuropathy [Unknown]
  - Hyperkalaemia [Unknown]
  - Diarrhoea [Unknown]
  - Fatigue [Unknown]
  - Hypoalbuminaemia [Unknown]
